FAERS Safety Report 5206878-6 (Version None)
Quarter: 2006Q4

REPORT INFORMATION
  Report Type: 
  Country: None (occurrence: None)
  Receive Date: 20061030
  Receipt Date: 20060908
  Transmission Date: 20070319
  Serious: No
  Sender: FDA-Public Use
  Company Number: 257059

PATIENT
  Age: 57 Year
  Sex: Male
  Weight: 131.5 kg

DRUGS (1)
  1. LEVEMIR [Suspect]
     Indication: INSULIN-REQUIRING TYPE II DIABETES MELLITUS
     Dosage: 10 IU, BID, SUBCUTANEOUS
     Route: 058
     Dates: start: 20060825

REACTIONS (1)
  - POLLAKIURIA [None]
